FAERS Safety Report 4362204-6 (Version None)
Quarter: 2004Q2

REPORT INFORMATION
  Report Type: 
  Country: None (occurrence: None)
  Receive Date: 20040521
  Receipt Date: 20040213
  Transmission Date: 20050107
  Serious: Yes (Disabling)
  Sender: FDA-Public Use
  Company Number: 200410467EU

PATIENT
  Age: 32 Year
  Sex: Male

DRUGS (4)
  1. ENOXAPARIN SODIUM [Suspect]
     Indication: INJURY
     Route: 058
     Dates: start: 20020415, end: 20020715
  2. CIPROFLOXACIN [Suspect]
     Indication: OSTEOMYELITIS
     Route: 048
     Dates: start: 20020415, end: 20020715
  3. CEFAZOLIN [Suspect]
     Indication: OSTEOMYELITIS
     Route: 048
     Dates: start: 20020423, end: 20020515
  4. RANITIDINE [Concomitant]

REACTIONS (1)
  - TOOTH LOSS [None]
